FAERS Safety Report 11318390 (Version 6)
Quarter: 2016Q1

REPORT INFORMATION
  Report Type: Report from Study
  Country: US (occurrence: US)
  Receive Date: 20150728
  Receipt Date: 20160215
  Transmission Date: 20160525
  Serious: Yes (Other)
  Sender: FDA-Public Use
  Company Number: US-AMGEN-USASP2015072673

PATIENT
  Age: 54 Year
  Sex: Male

DRUGS (2)
  1. ENBREL [Suspect]
     Active Substance: ETANERCEPT
     Dosage: 50 MG, 2 TIMES/WK
     Route: 065
  2. ENBREL [Suspect]
     Active Substance: ETANERCEPT
     Indication: ANKYLOSING SPONDYLITIS
     Dosage: 50 MG, UNK
     Route: 065
     Dates: start: 20100701

REACTIONS (17)
  - Insomnia [Unknown]
  - Flank pain [Unknown]
  - Aplastic anaemia [Unknown]
  - Iritis [Unknown]
  - Infection [Unknown]
  - Drug hypersensitivity [Unknown]
  - Panic disorder [Unknown]
  - Drug effect decreased [Unknown]
  - Fatigue [Unknown]
  - Renal pain [Unknown]
  - Platelet count decreased [Unknown]
  - Contusion [Unknown]
  - Chondrocalcinosis pyrophosphate [Unknown]
  - General physical health deterioration [Unknown]
  - Blood triglycerides increased [Unknown]
  - Injection site pain [Unknown]
  - Inappropriate schedule of drug administration [Unknown]

NARRATIVE: CASE EVENT DATE: 2015
